FAERS Safety Report 14079510 (Version 1)
Quarter: 2017Q4

REPORT INFORMATION
  Report Type: Report from Study
  Country: JP (occurrence: JP)
  Receive Date: 20171012
  Receipt Date: 20171012
  Transmission Date: 20180321
  Serious: Yes (Death)
  Sender: FDA-Public Use
  Company Number: JP-ACTELION-A-CH2017-160665

PATIENT
  Age: 65 Year
  Sex: Female

DRUGS (6)
  1. ALOSITOL [Concomitant]
     Active Substance: ALLOPURINOL
  2. OPSUMIT [Suspect]
     Active Substance: MACITENTAN
     Indication: PULMONARY HYPERTENSION
     Dosage: 10 MG, OD
     Route: 048
     Dates: start: 20160715, end: 20161026
  3. LASIX [Concomitant]
     Active Substance: FUROSEMIDE
  4. ADEMPAS [Concomitant]
     Active Substance: RIOCIGUAT
  5. LIPOVAS [Concomitant]
     Active Substance: PRAVASTATIN SODIUM
  6. OXYGEN. [Concomitant]
     Active Substance: OXYGEN

REACTIONS (5)
  - Hypercapnia [Fatal]
  - Depressed level of consciousness [Fatal]
  - Pulmonary hypertension [Fatal]
  - Dyspnoea [Fatal]
  - Respiratory acidosis [Fatal]

NARRATIVE: CASE EVENT DATE: 20161021
